FAERS Safety Report 5962508-7 (Version None)
Quarter: 2008Q4

REPORT INFORMATION
  Report Type: 
  Country: None (occurrence: None)
  Receive Date: 20081121
  Receipt Date: 20081113
  Transmission Date: 20090506
  Serious: Yes (Death)
  Sender: FDA-Public Use
  Company Number: PE-PFIZER INC-2008094815

PATIENT
  Sex: Female

DRUGS (4)
  1. LOPID [Suspect]
     Indication: DYSLIPIDAEMIA
     Dates: start: 20080514
  2. METFORMIN HCL [Concomitant]
  3. CAPTOPRIL [Concomitant]
  4. NIFEDIPINE [Concomitant]

REACTIONS (3)
  - ABDOMINAL SEPSIS [None]
  - CHOLELITHIASIS [None]
  - PANCREATITIS ACUTE [None]
